FAERS Safety Report 18347767 (Version 1)
Quarter: 2020Q4

REPORT INFORMATION
  Report Type: Spontaneous
  Country: US (occurrence: US)
  Receive Date: 20201005
  Receipt Date: 20201005
  Transmission Date: 20210114
  Serious: No
  Sender: FDA-Public Use
  Company Number: None

PATIENT
  Age: 72 Year
  Sex: Male

DRUGS (17)
  1. LATANOPROST. [Concomitant]
     Active Substance: LATANOPROST
  2. AZITHROMYCIN ANHYDROUS. [Concomitant]
     Active Substance: AZITHROMYCIN ANHYDROUS
  3. DORZOLAMIDE [Concomitant]
     Active Substance: DORZOLAMIDE
  4. CEFTRIAXONE. [Concomitant]
     Active Substance: CEFTRIAXONE
  5. REMDESIVIR. [Suspect]
     Active Substance: REMDESIVIR
     Indication: COVID-19
     Dates: start: 20200912, end: 20200916
  6. ATORVASTATIN [Concomitant]
     Active Substance: ATORVASTATIN
  7. IPRATROPIUM/ALBUTEROL [Concomitant]
     Active Substance: ALBUTEROL\IPRATROPIUM
  8. FAMOTIDINE. [Concomitant]
     Active Substance: FAMOTIDINE
  9. ERGOCALCIFEROL. [Concomitant]
     Active Substance: ERGOCALCIFEROL
  10. ONDANSETRON [Concomitant]
     Active Substance: ONDANSETRON
  11. ZINC SULFATE. [Concomitant]
     Active Substance: ZINC SULFATE
  12. ENOXAPARIN [Concomitant]
     Active Substance: ENOXAPARIN
  13. METOPROLOL SUCCINATE. [Concomitant]
     Active Substance: METOPROLOL SUCCINATE
  14. TIMOLOL. [Concomitant]
     Active Substance: TIMOLOL
  15. ACETAMINOPHEN. [Concomitant]
     Active Substance: ACETAMINOPHEN
  16. DEXAMETHASONE. [Concomitant]
     Active Substance: DEXAMETHASONE
  17. DOCUSATE [Concomitant]
     Active Substance: DOCUSATE

REACTIONS (14)
  - Aspartate aminotransferase increased [None]
  - Heart rate increased [None]
  - Dizziness [None]
  - Bradycardia [None]
  - Alanine aminotransferase increased [None]
  - Respiratory distress [None]
  - Sensation of foreign body [None]
  - Chest pain [None]
  - Blood calcium decreased [None]
  - Sinus arrest [None]
  - Oxygen saturation decreased [None]
  - Acute respiratory distress syndrome [None]
  - Nausea [None]
  - Inflammatory marker increased [None]
